FAERS Safety Report 10205465 (Version 1)
Quarter: 2014Q2

REPORT INFORMATION
  Report Type: Spontaneous
  Country: GB (occurrence: GB)
  Receive Date: 20140529
  Receipt Date: 20140529
  Transmission Date: 20141212
  Serious: Yes (Hospitalization)
  Sender: FDA-Public Use
  Company Number: GB-WATSON-2014-11157

PATIENT
  Age: 69 Year
  Sex: Female

DRUGS (2)
  1. METFORMIN (UNKNOWN) [Suspect]
     Indication: PRODUCT USED FOR UNKNOWN INDICATION
     Dosage: 1 G, BID
     Route: 065
  2. BYDUREON [Suspect]
     Indication: TYPE 2 DIABETES MELLITUS
     Dosage: 2 MG, 1/WEEK
     Route: 058
     Dates: start: 20120402

REACTIONS (2)
  - Hypoglycaemia [Unknown]
  - Blood glucose abnormal [Unknown]
